FAERS Safety Report 21728971 (Version 1)
Quarter: 2022Q4

REPORT INFORMATION
  Report Type: Spontaneous
  Country: US (occurrence: US)
  Receive Date: 20221214
  Receipt Date: 20221214
  Transmission Date: 20230112
  Serious: Yes (Hospitalization)
  Sender: FDA-Public Use
  Company Number: US-ALLERGAN-2225867US

PATIENT
  Age: 68 Year
  Sex: Female
  Weight: 48.08 kg

DRUGS (2)
  1. DALVANCE [Suspect]
     Active Substance: DALBAVANCIN
     Indication: Wound infection
     Dosage: 500 MG, SINGLE
     Route: 042
     Dates: start: 20220719, end: 20220719
  2. DALVANCE [Suspect]
     Active Substance: DALBAVANCIN
     Dosage: 1000 MG, SINGLE
     Route: 042
     Dates: start: 20220712, end: 20220712

REACTIONS (4)
  - Pyrexia [Recovered/Resolved]
  - Rash [Recovered/Resolved]
  - Hypersensitivity [Recovered/Resolved]
  - Hypotension [Recovered/Resolved]

NARRATIVE: CASE EVENT DATE: 20220722
